FAERS Safety Report 7398089-3 (Version None)
Quarter: 2011Q2

REPORT INFORMATION
  Report Type: 
  Country: None (occurrence: None)
  Receive Date: 20110406
  Receipt Date: 20110328
  Transmission Date: 20111010
  Serious: Yes (Death)
  Sender: FDA-Public Use
  Company Number: US-ELI_LILLY_AND_COMPANY-US201103008561

PATIENT

DRUGS (3)
  1. GEMCITABINE HYDROCHLORIDE [Suspect]
     Indication: RENAL CANCER METASTATIC
     Dosage: 1000 MG/M2, UNK
  2. BEVACIZUMAB [Concomitant]
     Dosage: 10 MG/KG, UNK
  3. CAPECITABINE [Concomitant]
     Dosage: 1000 MG, BID
     Route: 048

REACTIONS (2)
  - SEPSIS [None]
  - INTESTINAL PERFORATION [None]
